FAERS Safety Report 24198955 (Version 1)
Quarter: 2024Q3

REPORT INFORMATION
  Report Type: Spontaneous
  Country: ES (occurrence: ES)
  Receive Date: 20240812
  Receipt Date: 20240812
  Transmission Date: 20241016
  Serious: Yes (Hospitalization)
  Sender: TEVA
  Company Number: None

PATIENT
  Age: 90 Year
  Sex: Male

DRUGS (2)
  1. IBUPROFEN [Suspect]
     Active Substance: IBUPROFEN
     Indication: Wrist fracture
     Dosage: TAKE 3 DOSES, IBUPROFEN (1769A)
     Route: 048
     Dates: start: 20240703, end: 20240705
  2. EDOXABAN TOSYLATE [Suspect]
     Active Substance: EDOXABAN TOSYLATE
     Indication: Atrial fibrillation
     Dosage: 0-1-0, 28 TABLETS
     Route: 048
     Dates: start: 20240228, end: 20240707

REACTIONS (2)
  - Anaemia [Recovering/Resolving]
  - Gastroduodenal haemorrhage [Recovered/Resolved]

NARRATIVE: CASE EVENT DATE: 20240706
